FAERS Safety Report 6815228-0 (Version None)
Quarter: 2010Q2

REPORT INFORMATION
  Report Type: 
  Country: None (occurrence: None)
  Receive Date: 20100629
  Receipt Date: 20100615
  Transmission Date: 20101027
  Serious: Yes (Life-Threatening, Disabling)
  Sender: FDA-Public Use
  Company Number: 1-22495609

PATIENT
  Sex: Female

DRUGS (2)
  1. FENTANYL [Suspect]
     Indication: ENDOTRACHEAL INTUBATION
     Dosage: 5 MCG, BOLUS, INTRAVENOUS
     Route: 042
     Dates: start: 20100205
  2. MORPHINE [Concomitant]

REACTIONS (11)
  - ASPIRATION [None]
  - BRADYCARDIA [None]
  - CEREBRAL PALSY [None]
  - CONVULSION [None]
  - HYPERTONIA [None]
  - HYPOVENTILATION [None]
  - INCREASED UPPER AIRWAY SECRETION [None]
  - MECHANICAL VENTILATION COMPLICATION [None]
  - MUSCLE RIGIDITY [None]
  - OXYGEN SATURATION DECREASED [None]
  - PNEUMOTHORAX [None]
